FAERS Safety Report 20018500 (Version 1)
Quarter: 2021Q4

REPORT INFORMATION
  Report Type: Spontaneous
  Country: US (occurrence: US)
  Receive Date: 20211101
  Receipt Date: 20211101
  Transmission Date: 20220303
  Serious: Yes (Hospitalization, Other)
  Sender: FDA-Public Use
  Company Number: US-ASTELLAS-2021US040959

PATIENT
  Age: 65 Year
  Sex: Male

DRUGS (6)
  1. TACROLIMUS [Interacting]
     Active Substance: TACROLIMUS
     Indication: Renal transplant
     Route: 065
  2. TACROLIMUS [Interacting]
     Active Substance: TACROLIMUS
     Route: 065
  3. TACROLIMUS [Interacting]
     Active Substance: TACROLIMUS
     Route: 065
  4. TACROLIMUS [Interacting]
     Active Substance: TACROLIMUS
     Route: 065
  5. HARVONI [Interacting]
     Active Substance: LEDIPASVIR\SOFOSBUVIR
     Indication: Hepatitis C
     Dosage: UNK UNK, UNKNOWN FREQ.
     Route: 065
  6. MYCOPHENOLATE MOFETIL [Concomitant]
     Active Substance: MYCOPHENOLATE MOFETIL
     Indication: Renal transplant
     Route: 065

REACTIONS (6)
  - Toxicity to various agents [Unknown]
  - Acute kidney injury [Recovered/Resolved]
  - Nephropathy toxic [Unknown]
  - Hepatitis C [Unknown]
  - Immunosuppressant drug level increased [Recovering/Resolving]
  - Drug interaction [Unknown]
